FAERS Safety Report 15320786 (Version 2)
Quarter: 2018Q3

REPORT INFORMATION
  Report Type: Spontaneous
  Country: US (occurrence: US)
  Receive Date: 20180827
  Receipt Date: 20180914
  Transmission Date: 20181010
  Serious: Yes (Other)
  Sender: FDA-Public Use
  Company Number: US-HORIZON-RAV-0142-2018

PATIENT
  Age: 3 Year
  Sex: Male

DRUGS (2)
  1. RAVICTI [Suspect]
     Active Substance: GLYCEROL PHENYLBUTYRATE
     Indication: ARGINASE DEFICIENCY
     Dosage: 2 ML TID PO, DECREASED TO 1,5 ML TID FOR 2 DAYS
     Route: 048
     Dates: start: 20180726
  2. LAMICTAL [Concomitant]
     Active Substance: LAMOTRIGINE
     Dosage: 25 MG TWICE DAILY

REACTIONS (5)
  - Ammonia increased [Recovered/Resolved]
  - Paraesthesia [Recovered/Resolved]
  - Pyrexia [Recovered/Resolved]
  - Hypoaesthesia [Recovered/Resolved]
  - Viral infection [Recovered/Resolved]

NARRATIVE: CASE EVENT DATE: 201808
